FAERS Safety Report 8152241-8 (Version None)
Quarter: 2012Q1

REPORT INFORMATION
  Report Type: 
  Country: None (occurrence: None)
  Receive Date: 20120221
  Receipt Date: 20120210
  Transmission Date: 20120608
  Serious: Yes (Other)
  Sender: FDA-Public Use
  Company Number: BR-AMGEN-BRASP2012009993

PATIENT
  Age: 69 Year
  Sex: Female
  Weight: 82 kg

DRUGS (3)
  1. GLIMEPIRIDE [Concomitant]
     Indication: DIABETES MELLITUS
     Dosage: UNK
  2. ENBREL [Suspect]
     Indication: RHEUMATOID ARTHRITIS
     Dosage: 50 MG, WEEKLY
     Route: 058
     Dates: start: 20110801
  3. METHOTREXATE SODIUM [Concomitant]
     Dosage: 4 TABLETS ON SATURDAY

REACTIONS (5)
  - DIABETES MELLITUS [None]
  - RHINITIS [None]
  - COUGH [None]
  - INFLUENZA [None]
  - HEADACHE [None]
